FAERS Safety Report 25285109 (Version 1)
Quarter: 2025Q2

REPORT INFORMATION
  Report Type: Report from Study
  Country: CA (occurrence: CA)
  Receive Date: 20250509
  Receipt Date: 20250509
  Transmission Date: 20250716
  Serious: Yes (Hospitalization)
  Sender: ABBVIE
  Company Number: CA-ABBVIE-6268066

PATIENT
  Age: 72 Year
  Sex: Male

DRUGS (17)
  1. VENETOCLAX [Suspect]
     Active Substance: VENETOCLAX
     Indication: Acute myeloid leukaemia
     Dosage: END OF CYCLE
     Route: 048
     Dates: start: 20240311, end: 20240407
  2. VENETOCLAX [Suspect]
     Active Substance: VENETOCLAX
     Indication: Acute myeloid leukaemia
     Dosage: END OF CYCLE
     Route: 048
     Dates: start: 20240405, end: 20240502
  3. VENETOCLAX [Suspect]
     Active Substance: VENETOCLAX
     Indication: Acute myeloid leukaemia
     Dosage: OTHER (VENETOCLAX WAS GIVEN IN-PATIENT FROM MAY 4-7, 2024)
     Route: 048
     Dates: start: 20240504, end: 20240507
  4. VENETOCLAX [Suspect]
     Active Substance: VENETOCLAX
     Indication: Acute myeloid leukaemia
     Dosage: REASON FOR ENDING: OTHER (PATIENT WAS HOSPITALIZED FROM 14-16 JUNE, 2024, HENCE THEY STOPPED THIS...
     Route: 048
     Dates: start: 20240508, end: 20240613
  5. VENETOCLAX [Suspect]
     Active Substance: VENETOCLAX
     Indication: Acute myeloid leukaemia
     Dosage: END OF CYCLE
     Route: 048
     Dates: start: 20240619, end: 20240624
  6. AZACITIDINE [Suspect]
     Active Substance: AZACITIDINE
     Indication: Acute myeloid leukaemia
     Dosage: END OF CYCLE
     Route: 065
     Dates: start: 20240311, end: 20240317
  7. AZACITIDINE [Suspect]
     Active Substance: AZACITIDINE
     Indication: Acute myeloid leukaemia
     Dosage: END OF CYCLE
     Route: 065
     Dates: start: 20240408, end: 20240414
  8. AZACITIDINE [Suspect]
     Active Substance: AZACITIDINE
     Indication: Acute myeloid leukaemia
     Dosage: END OF CYCLE
     Route: 065
     Dates: start: 20240506, end: 20240512
  9. COVID-19 vaccine mRNA [Concomitant]
     Indication: COVID-19 immunisation
  10. COVID-19 vaccine mRNA [Concomitant]
     Indication: COVID-19 immunisation
  11. COVID-19 vaccine mRNA [Concomitant]
     Indication: COVID-19 immunisation
  12. COVID-19 vaccine mRNA [Concomitant]
     Indication: COVID-19 immunisation
  13. COVID-19 vaccine mRNA [Concomitant]
     Indication: COVID-19 immunisation
  14. COVID-19 vaccine mRNA [Concomitant]
     Indication: COVID-19 immunisation
  15. COVID-19 vaccine mRNA [Concomitant]
     Indication: COVID-19 immunisation
  16. ALLOPURINOL [Concomitant]
     Active Substance: ALLOPURINOL
     Indication: Prophylaxis
     Route: 048
     Dates: start: 20240308, end: 20240407
  17. ALLOPURINOL [Concomitant]
     Active Substance: ALLOPURINOL
     Indication: Prophylaxis
     Route: 048
     Dates: start: 20240131, end: 20240204

REACTIONS (1)
  - Hypoxia [Recovered/Resolved]

NARRATIVE: CASE EVENT DATE: 20240629
